FAERS Safety Report 10655106 (Version 1)
Quarter: 2014Q4

REPORT INFORMATION
  Report Type: Spontaneous
  Country: US (occurrence: None)
  Receive Date: 20141215
  Receipt Date: 20141215
  Transmission Date: 20150529
  Serious: Yes (Other)
  Sender: FDA-Public Use
  Company Number: None

PATIENT
  Age: 59 Year
  Sex: Female
  Weight: 69.85 kg

DRUGS (1)
  1. LEVOTHYROXIN [Suspect]
     Active Substance: LEVOTHYROXINE
     Dosage: 30, ONCE DAILY, TAKEN BY MOUTH
     Route: 048

REACTIONS (3)
  - Connective tissue disorder [None]
  - Urticaria [None]
  - Pruritus [None]

NARRATIVE: CASE EVENT DATE: 20140505
